FAERS Safety Report 8490934-3 (Version None)
Quarter: 2012Q2

REPORT INFORMATION
  Report Type: 
  Country: None (occurrence: None)
  Receive Date: 20120629
  Receipt Date: 20120629
  Transmission Date: 20120825
  Serious: Yes (Other)
  Sender: FDA-Public Use
  Company Number: None

PATIENT
  Sex: Female

DRUGS (1)
  1. TOPAMAX [Suspect]
     Indication: MIGRAINE PROPHYLAXIS
     Dosage: 75MG DAILY PO
     Route: 048
     Dates: start: 20110701, end: 20111015

REACTIONS (4)
  - VENTRICULAR TACHYCARDIA [None]
  - GAIT DISTURBANCE [None]
  - CHEST DISCOMFORT [None]
  - DYSPNOEA [None]
